FAERS Safety Report 14905297 (Version 1)
Quarter: 2018Q2

REPORT INFORMATION
  Report Type: Spontaneous
  Country: US (occurrence: US)
  Receive Date: 20180517
  Receipt Date: 20180517
  Transmission Date: 20180711
  Serious: No
  Sender: FDA-Public Use
  Company Number: US-SA-2017SA245189

PATIENT
  Age: 78 Year
  Sex: Male

DRUGS (3)
  1. SOLOSTAR [Suspect]
     Active Substance: DEVICE
     Indication: DIABETES MELLITUS
     Dates: start: 2017
  2. LANTUS SOLOSTAR [Suspect]
     Active Substance: INSULIN GLARGINE
     Indication: DIABETES MELLITUS
     Dosage: DOSE:10 UNIT(S)
     Route: 058
     Dates: start: 2017
  3. PRANDIN [Concomitant]
     Active Substance: REPAGLINIDE
     Dosage: DOSE/FREQ: 2 (UNITS UNKNOWN) AT EACH MEAL
     Route: 065

REACTIONS (2)
  - Device issue [Unknown]
  - Wrong technique in product usage process [Unknown]
